FAERS Safety Report 22361394 (Version 16)
Quarter: 2025Q3

REPORT INFORMATION
  Report Type: Report from Study
  Country: US (occurrence: US)
  Receive Date: 20230524
  Receipt Date: 20250828
  Transmission Date: 20251020
  Serious: Yes (Other)
  Sender: TAKEDA
  Company Number: US-TAKEDA-2022TUS015556

PATIENT
  Sex: Male

DRUGS (1)
  1. MARIBAVIR [Suspect]
     Active Substance: MARIBAVIR
     Indication: Cytomegalovirus infection
     Dosage: 400 MILLIGRAM, BID
     Dates: start: 20220228

REACTIONS (10)
  - Cytomegalovirus infection reactivation [Recovered/Resolved]
  - Dizziness [Unknown]
  - Feeling abnormal [Recovering/Resolving]
  - Pharyngitis streptococcal [Recovering/Resolving]
  - Malaise [Unknown]
  - Drug resistance [Unknown]
  - Dysgeusia [Unknown]
  - Diarrhoea [Unknown]
  - Dyspnoea [Unknown]
  - Product dose omission issue [Unknown]
